FAERS Safety Report 23155663 (Version 2)
Quarter: 2023Q4

REPORT INFORMATION
  Report Type: Spontaneous
  Country: US (occurrence: US)
  Receive Date: 20231107
  Receipt Date: 20231215
  Transmission Date: 20240109
  Serious: Yes (Hospitalization)
  Sender: FDA-Public Use
  Company Number: US-SANOFI-01821377

PATIENT
  Age: 69 Year
  Sex: Male

DRUGS (1)
  1. LANTUS SOLOSTAR [Suspect]
     Active Substance: INSULIN GLARGINE
     Indication: Type 2 diabetes mellitus
     Dosage: 30 IU, Q12H

REACTIONS (3)
  - Hospitalisation [Unknown]
  - Inappropriate schedule of product administration [Unknown]
  - Leg amputation [Unknown]
